FAERS Safety Report 10649548 (Version 1)
Quarter: 2014Q4

REPORT INFORMATION
  Report Type: Spontaneous
  Country: IT (occurrence: IT)
  Receive Date: 20141212
  Receipt Date: 20141212
  Transmission Date: 20150529
  Serious: Yes (Hospitalization)
  Sender: FDA-Public Use
  Company Number: IT-BAYER-2014-181526

PATIENT
  Age: 45 Year
  Sex: Female

DRUGS (2)
  1. PENTACOL [Suspect]
     Active Substance: MESALAMINE
     Indication: COLITIS ISCHAEMIC
     Dosage: 800 MG, UNK
     Route: 048
     Dates: start: 20130729, end: 20131020
  2. ACETYLSALICYLIC ACID (} 100 MG) [Suspect]
     Active Substance: ASPIRIN
     Dosage: UNK, UNK

REACTIONS (4)
  - Hepatitis acute [Recovering/Resolving]
  - Jaundice [Recovering/Resolving]
  - Colitis [Recovering/Resolving]
  - Pruritus [Recovering/Resolving]

NARRATIVE: CASE EVENT DATE: 20131020
